FAERS Safety Report 14433473 (Version 3)
Quarter: 2019Q1

REPORT INFORMATION
  Report Type: Spontaneous
  Country: US (occurrence: US)
  Receive Date: 20180124
  Receipt Date: 20190102
  Transmission Date: 20190417
  Serious: Yes (Other)
  Sender: FDA-Public Use
  Company Number: US-PCCINC-T201701639

PATIENT

DRUGS (6)
  1. EFFEXOR [Concomitant]
     Active Substance: VENLAFAXINE HYDROCHLORIDE
     Dosage: 75 MG, QD
     Route: 065
  2. ZYPREXA [Concomitant]
     Active Substance: OLANZAPINE
     Indication: MANIA
     Route: 065
  3. LAMICTAL [Concomitant]
     Active Substance: LAMOTRIGINE
     Indication: MANIA
     Dosage: BID
     Route: 065
  4. GABLOFEN [Suspect]
     Active Substance: BACLOFEN
     Indication: HEAD INJURY
     Dosage: 250 ?G, QD (16% INCREASE)
     Route: 037
  5. SEROQUEL [Concomitant]
     Active Substance: QUETIAPINE FUMARATE
     Indication: MANIA
     Dosage: AT NIGHT
     Route: 065
  6. GABLOFEN [Suspect]
     Active Substance: BACLOFEN
     Indication: MUSCLE SPASTICITY
     Dosage: 17 ?G, QD (1500MCG/ML)
     Route: 037

REACTIONS (7)
  - Psychiatric symptom [Unknown]
  - Underdose [Recovered/Resolved]
  - Nervous system disorder [Recovered/Resolved]
  - Device issue [Recovered/Resolved]
  - Muscle spasticity [Not Recovered/Not Resolved]
  - Dysarthria [Unknown]
  - Seizure [Unknown]

NARRATIVE: CASE EVENT DATE: 20170306
